FAERS Safety Report 4621960-X (Version None)
Quarter: 2005Q1

REPORT INFORMATION
  Report Type: 
  Country: None (occurrence: None)
  Receive Date: 20050329
  Receipt Date: 20041213
  Transmission Date: 20050727
  Serious: Yes (Hospitalization)
  Sender: FDA-Public Use
  Company Number: US-MERCK-0412USA01548

PATIENT
  Age: 71 Year
  Sex: Male
  Weight: 80 kg

DRUGS (16)
  1. PROSCAR [Suspect]
     Indication: BENIGN PROSTATIC HYPERPLASIA
     Route: 048
  2. LIPITOR [Concomitant]
     Route: 048
  3. TRICOR [Concomitant]
     Route: 048
  4. ZOLOFT [Concomitant]
     Route: 065
  5. MAVIK [Concomitant]
     Route: 048
  6. ASPIRIN [Concomitant]
     Route: 048
  7. ACTONEL [Concomitant]
     Route: 048
  8. NEXIUM [Concomitant]
     Route: 048
  9. VIOXX [Concomitant]
     Route: 048
  10. AMITRIPTYLINE HYDROCHLORIDE [Concomitant]
     Route: 048
  11. ATROVENT [Concomitant]
     Route: 065
  12. VENTOLIN [Concomitant]
     Route: 065
  13. PULMICORT [Concomitant]
     Route: 065
  14. VITAMINS (UNSPECIFIED) [Concomitant]
     Route: 065
  15. CALCIUM (UNSPECIFIED) AND VITAMIN D (UNSPECIFIED) [Concomitant]
     Route: 065
  16. IBUPROFEN [Concomitant]
     Route: 065

REACTIONS (19)
  - ANGINA PECTORIS [None]
  - AORTIC ATHEROSCLEROSIS [None]
  - AORTIC DILATATION [None]
  - AORTIC VALVE INCOMPETENCE [None]
  - CARDIAC VALVE DISEASE [None]
  - CORONARY ARTERY DISEASE [None]
  - DIASTOLIC DYSFUNCTION [None]
  - DIZZINESS [None]
  - ELECTROCARDIOGRAM QRS COMPLEX ABNORMAL [None]
  - ELECTROCARDIOGRAM ST-T CHANGE [None]
  - EMPHYSEMA [None]
  - HEADACHE [None]
  - HIATUS HERNIA [None]
  - HIGH DENSITY LIPOPROTEIN DECREASED [None]
  - RENAL ANEURYSM [None]
  - SCAN MYOCARDIAL PERFUSION ABNORMAL [None]
  - SCAR [None]
  - TRICUSPID VALVE INCOMPETENCE [None]
  - VENTRICULAR HYPERTROPHY [None]
